FAERS Safety Report 9894300 (Version 2)
Quarter: 2014Q1

REPORT INFORMATION
  Report Type: Report from Study
  Country: US (occurrence: US)
  Receive Date: 20140213
  Receipt Date: 20140221
  Transmission Date: 20141002
  Serious: Yes (Hospitalization)
  Sender: FDA-Public Use
  Company Number: US-GLAXOSMITHKLINE-B0968549A

PATIENT
  Age: 58 Year
  Sex: Male
  Weight: 80.3 kg

DRUGS (2)
  1. ZANAMIVIR [Suspect]
     Indication: H1N1 INFLUENZA
     Dosage: 250MG TWICE PER DAY
     Route: 042
     Dates: start: 20140116, end: 20140120
  2. HYDROCORTISONE [Concomitant]
     Indication: SEPSIS
     Route: 042
     Dates: start: 20140114, end: 20140124

REACTIONS (2)
  - Leukopenia [Recovered/Resolved]
  - Gastrointestinal haemorrhage [Recovered/Resolved]
